FAERS Safety Report 19271993 (Version 2)
Quarter: 2024Q1

REPORT INFORMATION
  Report Type: Spontaneous
  Country: US (occurrence: US)
  Receive Date: 20210519
  Receipt Date: 20240201
  Transmission Date: 20240410
  Serious: No
  Sender: FDA-Public Use
  Company Number: US-NOVEN PHARMACEUTICALS, INC.-2021US002315

PATIENT
  Sex: Female

DRUGS (1)
  1. DAYTRANA [Suspect]
     Active Substance: METHYLPHENIDATE
     Indication: Product used for unknown indication
     Dosage: 15 MG/ 9HRS, UNK
     Route: 062

REACTIONS (3)
  - Underdose [Unknown]
  - Product administration error [Unknown]
  - Device breakage [Unknown]

NARRATIVE: CASE EVENT DATE: 20210201
